FAERS Safety Report 6050232-4 (Version None)
Quarter: 2009Q1

REPORT INFORMATION
  Report Type: 
  Country: None (occurrence: None)
  Receive Date: 20090121
  Receipt Date: 20090114
  Transmission Date: 20090719
  Serious: Yes (Life-Threatening, Other)
  Sender: FDA-Public Use
  Company Number: 2008SP023915

PATIENT
  Sex: Male

DRUGS (1)
  1. TEMODAL [Suspect]
     Indication: ASTROCYTOMA
     Dosage: 120 MG; QD; PO
     Route: 048
     Dates: start: 20060713, end: 20060810

REACTIONS (3)
  - EXOPHTHALMOS [None]
  - MYELODYSPLASTIC SYNDROME [None]
  - PLASMA CELLS INCREASED [None]
